FAERS Safety Report 15209312 (Version 1)
Quarter: 2018Q3

REPORT INFORMATION
  Report Type: Report from Study
  Country: US (occurrence: US)
  Receive Date: 20180727
  Receipt Date: 20180727
  Transmission Date: 20181010
  Serious: Yes (Hospitalization)
  Sender: FDA-Public Use
  Company Number: US-PFIZER INC-2018298244

PATIENT
  Age: 20 Year
  Sex: Male
  Weight: 48.9 kg

DRUGS (6)
  1. DOXORUBICIN HCL [Suspect]
     Active Substance: DOXORUBICIN HYDROCHLORIDE
     Indication: HODGKIN^S DISEASE
     Dosage: 25 MG/M2/DOSE OVER IV BOLUS 1?5 MIN OR BY INTERMITTENT INFUSION OVER 1?15 MIN ON DAYS 1 AND 2
     Dates: start: 20171115, end: 20171122
  2. BRENTUXIMAB VEDOTIN RECOMBINANT [Suspect]
     Active Substance: BRENTUXIMAB VEDOTIN
     Indication: HODGKIN^S DISEASE
     Dosage: 1.8 MG/KG/DOSE (MAX DOSE IS 180 MG) IV OVER 30 MIN ON DAY 1
     Route: 042
     Dates: start: 20171115, end: 20171122
  3. VINCRISTINE SULFATE. [Suspect]
     Active Substance: VINCRISTINE SULFATE
     Indication: HODGKIN^S DISEASE
     Dosage: 1.4 MG/M2,(MAX DOSE 2.8 MG) IV PUSH OVER 1 MIN OR INFUSION ON DAY 8
     Route: 042
     Dates: start: 20171115, end: 20171122
  4. CYCLOPHOSPHAMIDE. [Suspect]
     Active Substance: CYCLOPHOSPHAMIDE
     Indication: HODGKIN^S DISEASE
     Dosage: 600 MG/M2/DOSE  OVER 30?60 MIN ON DAYS 1?2
     Route: 042
     Dates: start: 20171115, end: 20171122
  5. PREDNISONE. [Suspect]
     Active Substance: PREDNISONE
     Indication: HODGKIN^S DISEASE
     Dosage: 20 MG/M2/DOSE BID ON DAYS 1?7
     Route: 048
     Dates: start: 20171115, end: 20171115
  6. VP?16 [Suspect]
     Active Substance: ETOPOSIDE
     Indication: HODGKIN^S DISEASE
     Dosage: 125 MG/M2/DOSE  OVER 60?120 MIN ON DAYS 1?3
     Route: 042
     Dates: start: 20171115, end: 20171115

REACTIONS (3)
  - Sepsis [Unknown]
  - Lung infection [Unknown]
  - Respiratory failure [Unknown]

NARRATIVE: CASE EVENT DATE: 20171201
